FAERS Safety Report 7807158-2 (Version None)
Quarter: 2011Q4

REPORT INFORMATION
  Report Type: 
  Country: None (occurrence: None)
  Receive Date: 20111011
  Receipt Date: 20111003
  Transmission Date: 20120403
  Serious: Yes (Other)
  Sender: FDA-Public Use
  Company Number: PHHY2011US88170

PATIENT
  Age: 59 Year
  Sex: Male

DRUGS (4)
  1. SODIUM CHLORIDE [Concomitant]
     Dosage: UNK UKN, UNK
  2. PROLEUKIN [Suspect]
     Indication: METASTASES TO LIVER
  3. PROLEUKIN [Suspect]
     Indication: MALIGNANT MELANOMA
     Dosage: 600000 IU/KG, Q8H
     Route: 040
  4. PROLEUKIN [Suspect]
     Indication: METASTASES TO LUNG

REACTIONS (7)
  - HYPONATRAEMIA [None]
  - TACHYCARDIA [None]
  - INAPPROPRIATE ANTIDIURETIC HORMONE SECRETION [None]
  - BLOOD POTASSIUM DECREASED [None]
  - BLOOD OSMOLARITY DECREASED [None]
  - HYPOTENSION [None]
  - URINE OSMOLARITY INCREASED [None]
